FAERS Safety Report 22246701 (Version 1)
Quarter: 2023Q2

REPORT INFORMATION
  Report Type: Spontaneous
  Country: US (occurrence: None)
  Receive Date: 20230421
  Receipt Date: 20230421
  Transmission Date: 20230721
  Serious: Yes (Hospitalization)
  Sender: FDA-Public Use
  Company Number: None

PATIENT
  Age: 29 Year
  Sex: Female

DRUGS (47)
  1. HUMIRA [Suspect]
     Active Substance: ADALIMUMAB
     Indication: Rheumatoid arthritis
     Dosage: OTHER QUANTITY : 40 MG/0.4ML;?FREQUENCY : WEEKLY;?
     Route: 058
     Dates: start: 20201012
  2. HUMIRA [Suspect]
     Active Substance: ADALIMUMAB
     Dosage: OTHER QUANTITY : 1 PEN;?FREQUENCY : WEEKLY;?
     Route: 058
  3. DEXTROAMPHET SACCHARAT, AMPHET ASPARTATE, DEXTROAMPHET SULFATE AND AMP [Concomitant]
     Active Substance: AMPHETAMINE ASPARTATE\AMPHETAMINE ASPARTATE MONOHYDRATE\AMPHETAMINE SULFATE\DEXTROAMPHETAMINE SACCHA
  4. BACOFEN [Concomitant]
  5. BISACODYL [Concomitant]
  6. BUPROPN HCL [Concomitant]
  7. CETIRIZINE [Concomitant]
  8. CLONAZEPAM [Concomitant]
  9. CLOZAPINE [Concomitant]
  10. CONSTULOSE SOL [Concomitant]
  11. DEXILANT [Concomitant]
  12. EPINEPHRINE [Concomitant]
  13. ESOMEPRA MAG [Concomitant]
  14. FAMOTIDINE [Concomitant]
  15. FERROUS SULF SYP [Concomitant]
  16. FIBER SELECT CHW GUMMIES [Concomitant]
  17. FLUDROCORT [Concomitant]
  18. HYDROXYZ HCL [Concomitant]
  19. HYOSCYAMINE [Concomitant]
  20. LACTAID [Concomitant]
  21. LAMOTRIGINE [Concomitant]
  22. LINZESS [Concomitant]
     Active Substance: LINACLOTIDE
  23. LORAZEPAM [Concomitant]
  24. MEDROL [Concomitant]
  25. MELOXICAM [Concomitant]
  26. METHYLPREDNISOLONE [Concomitant]
     Active Substance: METHYLPREDNISOLONE
  27. MINIPRESS [Concomitant]
     Active Substance: PRAZOSIN HYDROCHLORIDE
  28. MODAFINIL [Concomitant]
  29. MONTELUKAST [Concomitant]
     Active Substance: MONTELUKAST SODIUM
  30. MOTEGRITY [Concomitant]
  31. NITROGLYCERN [Concomitant]
  32. OMEPRAZOLE [Concomitant]
  33. ONDANSETRON [Concomitant]
  34. OYST-CAL D [Concomitant]
  35. PANTOPRAZOLE [Concomitant]
  36. PEG-3350 SOL ELECTROL [Concomitant]
  37. PEPCID [Concomitant]
  38. PLAQUENIL [Concomitant]
  39. PRAZOSIN HCL [Concomitant]
  40. PREGABALIN [Concomitant]
  41. PROPRANOLOL [Concomitant]
  42. PROVENTIL HFA [Concomitant]
     Active Substance: ALBUTEROL SULFATE
  43. PYRIDOSTIGM [Concomitant]
  44. SARNA SENSIT LOT [Concomitant]
  45. STOOL SOFTNR [Concomitant]
  46. SYMBICORT AER [Concomitant]
  47. TAYTULLA [Concomitant]
     Active Substance: ETHINYL ESTRADIOL\NORETHINDRONE ACETATE

REACTIONS (1)
  - Therapy interrupted [None]

NARRATIVE: CASE EVENT DATE: 20230409
